FAERS Safety Report 9799091 (Version 1)
Quarter: 2014Q1

REPORT INFORMATION
  Report Type: Spontaneous
  Country: KR (occurrence: None)
  Receive Date: 20140102
  Receipt Date: 20140102
  Transmission Date: 20141002
  Serious: Yes (Hospitalization)
  Sender: FDA-Public Use
  Company Number: SYM-2013-14332

PATIENT
  Age: 69 Year
  Sex: Female

DRUGS (1)
  1. DICLOFENAC SODIUM [Suspect]
     Indication: POSTOPERATIVE CARE
     Dosage: 2 IN 1 D
     Route: 030

REACTIONS (1)
  - Ileal perforation [None]
